FAERS Safety Report 11976249 (Version 1)
Quarter: 2016Q1

REPORT INFORMATION
  Report Type: Spontaneous
  Country: US (occurrence: None)
  Receive Date: 20160128
  Receipt Date: 20160128
  Transmission Date: 20160526
  Serious: Yes (Life-Threatening)
  Sender: FDA-Public Use
  Company Number: None

PATIENT
  Age: 59 Year
  Sex: Male

DRUGS (9)
  1. LEVEMIR [Concomitant]
     Active Substance: INSULIN DETEMIR
  2. NOVOLOG [Concomitant]
     Active Substance: INSULIN ASPART
  3. GEMFIBROZIL. [Concomitant]
     Active Substance: GEMFIBROZIL
  4. LEXAPRO [Concomitant]
     Active Substance: ESCITALOPRAM OXALATE
  5. LASIX [Concomitant]
     Active Substance: FUROSEMIDE
  6. CLONADINE [Concomitant]
  7. LISINOPRIL. [Concomitant]
     Active Substance: LISINOPRIL
  8. ENBREL [Suspect]
     Active Substance: ETANERCEPT
     Indication: PSORIASIS
     Route: 058
     Dates: start: 20150509
  9. METHOTREXATE [Concomitant]
     Active Substance: METHOTREXATE

REACTIONS (3)
  - Myocardial infarction [None]
  - Drug ineffective [None]
  - Psoriasis [None]

NARRATIVE: CASE EVENT DATE: 20151215
